FAERS Safety Report 24636815 (Version 1)
Quarter: 2024Q4

REPORT INFORMATION
  Report Type: Spontaneous
  Country: US (occurrence: None)
  Receive Date: 20241118
  Receipt Date: 20241118
  Transmission Date: 20250114
  Serious: Yes (Hospitalization)
  Sender: Public
  Company Number: None

PATIENT
  Age: 19 Year
  Sex: Female
  Weight: 32 kg

DRUGS (1)
  1. VENOFER [Suspect]
     Active Substance: IRON SUCROSE
     Indication: Iron deficiency anaemia
     Dosage: 200 MG  ONCE INTRAVENOUS?
     Route: 042
     Dates: start: 20241028, end: 20241028

REACTIONS (7)
  - Pyrexia [None]
  - Pallor [None]
  - Hyperhidrosis [None]
  - Sinus tachycardia [None]
  - Respiratory rate increased [None]
  - Scoliosis [None]
  - Infusion related reaction [None]

NARRATIVE: CASE EVENT DATE: 20241028
